FAERS Safety Report 18219269 (Version 2)
Quarter: 2020Q4

REPORT INFORMATION
  Report Type: Report from Study
  Country: JP (occurrence: JP)
  Receive Date: 20200901
  Receipt Date: 20201223
  Transmission Date: 20210113
  Serious: Yes (Death, Other)
  Sender: FDA-Public Use
  Company Number: JP-TAKEDA-2020TUS036799

PATIENT
  Age: 73 Year
  Sex: Female
  Weight: 40 kg

DRUGS (26)
  1. BORTEZOMIB. [Suspect]
     Active Substance: BORTEZOMIB
     Dosage: 1.5 MILLIGRAM/SQ. METER, QD
     Route: 065
     Dates: start: 20180125, end: 20180125
  2. BORTEZOMIB. [Suspect]
     Active Substance: BORTEZOMIB
     Dosage: 1.5 MILLIGRAM/SQ. METER, QD
     Route: 065
     Dates: start: 20180111, end: 20180111
  3. BORTEZOMIB. [Suspect]
     Active Substance: BORTEZOMIB
     Dosage: 1.5 MILLIGRAM/KILOGRAM, QD
     Route: 065
     Dates: start: 20180215, end: 20180215
  4. DARZALEX [Suspect]
     Active Substance: DARATUMUMAB
     Dosage: 16 MILLIGRAM/KILOGRAM, QD
     Route: 041
     Dates: start: 20180125, end: 20180125
  5. DARZALEX [Suspect]
     Active Substance: DARATUMUMAB
     Dosage: 16 MILLIGRAM/KILOGRAM, QD
     Route: 041
     Dates: start: 20180215, end: 20180215
  6. DEXAMETHASONE. [Concomitant]
     Active Substance: DEXAMETHASONE
     Dosage: 20 MILLIGRAM, QD
     Route: 065
     Dates: start: 20180125, end: 20180125
  7. BORTEZOMIB. [Suspect]
     Active Substance: BORTEZOMIB
     Dosage: 1.5 MILLIGRAM/SQ. METER, QD
     Route: 065
     Dates: start: 20171228, end: 20171228
  8. BORTEZOMIB. [Suspect]
     Active Substance: BORTEZOMIB
     Dosage: 1.5 MILLIGRAM/SQ. METER, QD
     Route: 065
     Dates: start: 20180118, end: 20180118
  9. BORTEZOMIB. [Suspect]
     Active Substance: BORTEZOMIB
     Dosage: 1.5 MILLIGRAM/SQ. METER, QD
     Route: 065
     Dates: start: 20180208, end: 20180208
  10. DARZALEX [Suspect]
     Active Substance: DARATUMUMAB
     Dosage: 16 MILLIGRAM/KILOGRAM, QD
     Route: 041
     Dates: start: 20180104, end: 20180104
  11. DEXAMETHASONE. [Concomitant]
     Active Substance: DEXAMETHASONE
     Dosage: 20 MILLIGRAM, QD
     Route: 065
     Dates: start: 20171228, end: 20171228
  12. DEXAMETHASONE. [Concomitant]
     Active Substance: DEXAMETHASONE
     Dosage: 20 MILLIGRAM, QD
     Route: 065
     Dates: start: 20180222, end: 20180222
  13. BORTEZOMIB. [Suspect]
     Active Substance: BORTEZOMIB
     Dosage: 1.5 MILLIGRAM/SQ. METER, QD
     Route: 065
     Dates: start: 20180222, end: 20180222
  14. DEXAMETHASONE. [Concomitant]
     Active Substance: DEXAMETHASONE
     Dosage: 20 MILLIGRAM, QD
     Route: 065
     Dates: start: 20180215, end: 20180215
  15. DARZALEX [Suspect]
     Active Substance: DARATUMUMAB
     Dosage: 16 MILLIGRAM/KILOGRAM, QD
     Route: 041
     Dates: start: 20180222, end: 20180222
  16. DEXAMETHASONE. [Concomitant]
     Active Substance: DEXAMETHASONE
     Dosage: 20 MILLIGRAM, QD
     Route: 065
     Dates: start: 20180118, end: 20180118
  17. BORTEZOMIB. [Suspect]
     Active Substance: BORTEZOMIB
     Indication: PLASMA CELL MYELOMA
     Dosage: 1.5 MILLIGRAM/SQ. METER, QD
     Route: 065
     Dates: start: 20171222, end: 20171222
  18. DARZALEX [Suspect]
     Active Substance: DARATUMUMAB
     Dosage: 16 MILLIGRAM/KILOGRAM, QD
     Route: 041
     Dates: start: 20171228, end: 20171228
  19. DARZALEX [Suspect]
     Active Substance: DARATUMUMAB
     Dosage: 16 MILLIGRAM/KILOGRAM, QD
     Route: 041
     Dates: start: 20180112, end: 20180112
  20. DARZALEX [Suspect]
     Active Substance: DARATUMUMAB
     Dosage: 16 MILLIGRAM/KILOGRAM, QD
     Route: 041
     Dates: start: 20180118, end: 20180118
  21. DEXAMETHASONE. [Concomitant]
     Active Substance: DEXAMETHASONE
     Indication: PLASMA CELL MYELOMA
     Dosage: 20 MILLIGRAM, QD
     Route: 065
     Dates: start: 20171221, end: 20171221
  22. DEXAMETHASONE. [Concomitant]
     Active Substance: DEXAMETHASONE
     Dosage: 20 MILLIGRAM, QD
     Route: 065
     Dates: start: 20180104, end: 20180104
  23. DEXAMETHASONE. [Concomitant]
     Active Substance: DEXAMETHASONE
     Dosage: 20 MILLIGRAM, QD
     Route: 065
     Dates: start: 20180112, end: 20180112
  24. DEXAMETHASONE. [Concomitant]
     Active Substance: DEXAMETHASONE
     Dosage: 20 MILLIGRAM, QD
     Route: 065
     Dates: start: 20180208, end: 20180208
  25. DARZALEX [Suspect]
     Active Substance: DARATUMUMAB
     Indication: PLASMA CELL MYELOMA
     Dosage: 16 MILLIGRAM/KILOGRAM, QD
     Route: 041
     Dates: start: 20171221, end: 20171221
  26. DARZALEX [Suspect]
     Active Substance: DARATUMUMAB
     Dosage: 16 MILLIGRAM/KILOGRAM, QD
     Route: 041
     Dates: start: 20180208, end: 20180208

REACTIONS (1)
  - Plasma cell myeloma [Fatal]

NARRATIVE: CASE EVENT DATE: 20180222
